FAERS Safety Report 16012075 (Version 2)
Quarter: 2019Q4

REPORT INFORMATION
  Report Type: Report from Study
  Country: JP (occurrence: JP)
  Receive Date: 20190227
  Receipt Date: 20191010
  Transmission Date: 20200122
  Serious: No
  Sender: FDA-Public Use
  Company Number: JP-ASTRAZENECA-2019SE31307

PATIENT
  Age: 69 Year
  Sex: Female
  Weight: 35 kg

DRUGS (3)
  1. LYNPARZA [Suspect]
     Active Substance: OLAPARIB
     Indication: OVARIAN CANCER
     Route: 048
     Dates: start: 20180516, end: 20190718
  2. LYNPARZA [Suspect]
     Active Substance: OLAPARIB
     Indication: OVARIAN CANCER
     Route: 048
     Dates: start: 20180822, end: 20181120
  3. LYNPARZA [Suspect]
     Active Substance: OLAPARIB
     Indication: OVARIAN CANCER
     Route: 048
     Dates: start: 20181121

REACTIONS (4)
  - Anaemia [Recovered/Resolved]
  - Renal impairment [Recovered/Resolved]
  - Nausea [Recovering/Resolving]
  - Taste disorder [Recovered/Resolved]

NARRATIVE: CASE EVENT DATE: 20180523
